FAERS Safety Report 10691169 (Version 1)
Quarter: 2015Q1

REPORT INFORMATION
  Report Type: Spontaneous
  Country: JP (occurrence: None)
  Receive Date: 20150102
  Receipt Date: 20150102
  Transmission Date: 20150720
  Serious: Yes (Hospitalization, Other)
  Sender: FDA-Public Use
  Company Number: JP-ZYDUS-006183

PATIENT
  Age: 43 Year
  Sex: Male

DRUGS (2)
  1. ANTIPSYCHOTICS [Concomitant]
     Active Substance: UNSPECIFIED INGREDIENT
  2. RISPERIDONE. [Suspect]
     Active Substance: RISPERIDONE
     Indication: SCHIZOPHRENIA

REACTIONS (5)
  - Persecutory delusion [None]
  - Psychomotor hyperactivity [None]
  - Hallucination, auditory [None]
  - Rebound psychosis [None]
  - Drug withdrawal syndrome [None]
